FAERS Safety Report 4831579-3 (Version None)
Quarter: 2005Q4

REPORT INFORMATION
  Report Type: 
  Country: None (occurrence: None)
  Receive Date: 20051118
  Receipt Date: 20051109
  Transmission Date: 20060501
  Serious: Yes (Death, Hospitalization)
  Sender: FDA-Public Use
  Company Number: JO-MERCK-0511USA01474

PATIENT
  Age: 57 Year
  Sex: Female

DRUGS (1)
  1. ZOCOR [Suspect]
     Route: 048

REACTIONS (2)
  - DEATH [None]
  - MYOCARDIAL INFARCTION [None]
